FAERS Safety Report 5348662-9 (Version None)
Quarter: 2007Q2

REPORT INFORMATION
  Report Type: 
  Country: None (occurrence: None)
  Receive Date: 20070605
  Receipt Date: 20070521
  Transmission Date: 20071010
  Serious: Yes (Death)
  Sender: FDA-Public Use
  Company Number: 2007001007

PATIENT
  Age: 84 Year
  Sex: Male

DRUGS (4)
  1. MACUGEN [Suspect]
     Indication: MACULAR DEGENERATION
     Dosage: (ONCE), INTRA-VITREAL
     Dates: start: 20060215, end: 20060215
  2. ALPHAGAN [Concomitant]
  3. TIMOPTIC [Concomitant]
  4. VITAMIN B12 [Concomitant]

REACTIONS (2)
  - APNOEA [None]
  - SUDDEN DEATH [None]
